FAERS Safety Report 11243852 (Version 1)
Quarter: 2015Q3

REPORT INFORMATION
  Report Type: Spontaneous
  Country: US (occurrence: None)
  Receive Date: 20150702
  Receipt Date: 20150702
  Transmission Date: 20151125
  Serious: No
  Sender: FDA-Public Use
  Company Number: None

PATIENT
  Age: 53 Year
  Sex: Female

DRUGS (1)
  1. GRANIX [Suspect]
     Active Substance: TBO-FILGRASTIM
     Indication: NEUTROPENIA
     Dosage: 0.8ML  DAILY FOR 14 DAYS  SUBCUTANEOUSLY
     Route: 058
     Dates: start: 20150608

REACTIONS (2)
  - Memory impairment [None]
  - Drug dose omission [None]
